FAERS Safety Report 15499979 (Version 1)
Quarter: 2018Q4

REPORT INFORMATION
  Report Type: Spontaneous
  Country: CN (occurrence: CN)
  Receive Date: 20181015
  Receipt Date: 20181015
  Transmission Date: 20190205
  Serious: Yes (Other)
  Sender: FDA-Public Use
  Company Number: CN-PFIZER INC-2018406609

PATIENT
  Age: 76 Year
  Sex: Male
  Weight: 72 kg

DRUGS (1)
  1. DIFLUCAN [Suspect]
     Active Substance: FLUCONAZOLE
     Indication: LUNG INFECTION
     Dosage: 100 MG, ONCE A DAY
     Route: 045
     Dates: start: 20180717, end: 20180719

REACTIONS (2)
  - Incorrect route of product administration [Unknown]
  - Platelet count decreased [Recovering/Resolving]

NARRATIVE: CASE EVENT DATE: 20180721
